FAERS Safety Report 14944629 (Version 8)
Quarter: 2020Q4

REPORT INFORMATION
  Report Type: Other
  Country: US (occurrence: US)
  Receive Date: 20180529
  Receipt Date: 20201216
  Transmission Date: 20210113
  Serious: Yes (Life-Threatening, Hospitalization, Other)
  Sender: FDA-Public Use
  Company Number: US-ROCHE-2130453

PATIENT
  Age: 54 Year
  Sex: Male
  Weight: 77.18 kg

DRUGS (3)
  1. ERIVEDGE [Suspect]
     Active Substance: VISMODEGIB
     Route: 065
     Dates: start: 202003
  2. ERIVEDGE [Suspect]
     Active Substance: VISMODEGIB
     Dosage: THERAPY ON MONDAYS, WEDNESDAYS AND FRIDAYS
     Route: 065
  3. ERIVEDGE [Suspect]
     Active Substance: VISMODEGIB
     Indication: BASAL CELL CARCINOMA
     Dosage: ONGOING: NO; DAILY TAKE 1 CAPSULE BY MOUTH EVERY DAY
     Route: 048
     Dates: start: 2020

REACTIONS (15)
  - Appendicitis perforated [Recovered/Resolved]
  - Back disorder [Unknown]
  - Malignant neoplasm progression [Unknown]
  - Deafness [Unknown]
  - Rheumatoid arthritis [Not Recovered/Not Resolved]
  - Circumstance or information capable of leading to medication error [Unknown]
  - Supraventricular tachycardia [Recovered/Resolved]
  - Pain [Not Recovered/Not Resolved]
  - Heart rate increased [Not Recovered/Not Resolved]
  - Malaise [Not Recovered/Not Resolved]
  - Basal cell carcinoma [Not Recovered/Not Resolved]
  - Fatigue [Recovered/Resolved]
  - Muscle spasms [Recovered/Resolved]
  - Alopecia [Recovered/Resolved]
  - Muscle spasms [Not Recovered/Not Resolved]

NARRATIVE: CASE EVENT DATE: 202003
